FAERS Safety Report 4881507-X (Version None)
Quarter: 2006Q1

REPORT INFORMATION
  Report Type: 
  Country: None (occurrence: None)
  Receive Date: 20060116
  Receipt Date: 20020212
  Transmission Date: 20060701
  Serious: Yes (Other)
  Sender: FDA-Public Use
  Company Number: US-GLAXOSMITHKLINE-A0359183A

PATIENT
  Sex: Male
  Weight: 96.4 kg

DRUGS (10)
  1. AVANDIA [Suspect]
     Route: 048
  2. ACTOS [Suspect]
     Route: 048
     Dates: start: 20011101, end: 20020101
  3. INSULIN [Concomitant]
  4. AMARYL [Concomitant]
     Dosage: 4MG PER DAY
     Route: 048
  5. ZESTRIL [Concomitant]
     Indication: HYPERTENSION
     Dosage: 10MG PER DAY
     Route: 048
  6. ASPIRIN [Concomitant]
     Dosage: 81MG PER DAY
     Route: 048
  7. MULTI-VITAMIN [Concomitant]
     Route: 048
  8. ASCORBIC ACID [Concomitant]
     Dosage: 1000MG PER DAY
     Route: 048
  9. VITAMIN E [Concomitant]
     Dosage: 400IU PER DAY
     Route: 048
  10. LOZOL [Concomitant]
     Indication: HYPERTENSION
     Dosage: 2.5MG PER DAY
     Route: 048
     Dates: start: 20001201, end: 20011201

REACTIONS (9)
  - CATARACT [None]
  - DYSPNOEA [None]
  - EYE SWELLING [None]
  - MACULAR OEDEMA [None]
  - OEDEMA PERIPHERAL [None]
  - PHOTOSENSITIVITY REACTION [None]
  - RETINAL OEDEMA [None]
  - VISION BLURRED [None]
  - WEIGHT INCREASED [None]
